FAERS Safety Report 19028684 (Version 1)
Quarter: 2021Q1

REPORT INFORMATION
  Report Type: Other
  Country: US (occurrence: US)
  Receive Date: 20210319
  Receipt Date: 20210319
  Transmission Date: 20210420
  Serious: Yes (Other)
  Sender: FDA-Public Use
  Company Number: US-ROCHE-2786043

PATIENT
  Age: 48 Year
  Sex: Male

DRUGS (5)
  1. FLUMAZENIL. [Concomitant]
     Active Substance: FLUMAZENIL
  2. CLONAZEPAM. [Suspect]
     Active Substance: CLONAZEPAM
     Indication: SEIZURE
     Route: 065
  3. NALOXONE [Concomitant]
     Active Substance: NALOXONE
  4. HYDROCODONE [Concomitant]
     Active Substance: HYDROCODONE
  5. ACETAMINOPHEN. [Concomitant]
     Active Substance: ACETAMINOPHEN

REACTIONS (4)
  - Respiratory depression [Unknown]
  - Coma scale abnormal [Unknown]
  - Nervous system disorder [Unknown]
  - Intentional overdose [Unknown]
